FAERS Safety Report 5230451-7 (Version None)
Quarter: 2007Q1

REPORT INFORMATION
  Report Type: 
  Country: None (occurrence: None)
  Receive Date: 20070206
  Receipt Date: 20070124
  Transmission Date: 20070707
  Serious: Yes (Other)
  Sender: FDA-Public Use
  Company Number: US-ELI_LILLY_AND_COMPANY-US200701004793

PATIENT
  Age: 50 Year
  Sex: Female

DRUGS (10)
  1. FORTEO [Suspect]
     Indication: OSTEOPENIA
     Dates: start: 20040625, end: 20041201
  2. SYNTHROID [Concomitant]
     Indication: HYPOTHYROIDISM
  3. TYLENOL W/ CODEINE NO. 3 [Concomitant]
     Indication: PAIN
  4. VALIUM [Concomitant]
     Indication: ANXIETY DISORDER
  5. PRILOSEC [Concomitant]
     Indication: OESOPHAGEAL DISORDER
  6. LIDODERM [Concomitant]
     Indication: PAIN
  7. ROBAXIN [Concomitant]
     Indication: FIBROMYALGIA
  8. EFFEXOR [Concomitant]
     Indication: FIBROMYALGIA
  9. MEVACOR [Concomitant]
  10. FOLIC ACID [Concomitant]

REACTIONS (1)
  - THROMBOSIS [None]
